FAERS Safety Report 6649004-9 (Version None)
Quarter: 2010Q1

REPORT INFORMATION
  Report Type: 
  Country: None (occurrence: None)
  Receive Date: 20100319
  Receipt Date: 20100308
  Transmission Date: 20100710
  Serious: No
  Sender: FDA-Public Use
  Company Number: 008218

PATIENT
  Age: 83 Year
  Sex: Male

DRUGS (4)
  1. CILOSTAZOL [Suspect]
     Indication: CEREBRAL ARTERY STENOSIS
     Dosage: ORAL
     Route: 048
     Dates: start: 20090814, end: 20090821
  2. ASPIRIN [Concomitant]
  3. HALOPERIDOL [Concomitant]
  4. ATORVASTATIN CALCIUM [Concomitant]

REACTIONS (5)
  - CONSTIPATION [None]
  - DECREASED APPETITE [None]
  - DEPRESSED MOOD [None]
  - OFF LABEL USE [None]
  - RENAL IMPAIRMENT [None]
